FAERS Safety Report 11151349 (Version 3)
Quarter: 2015Q2

REPORT INFORMATION
  Report Type: Report from Study
  Country: JP (occurrence: JP)
  Receive Date: 20150601
  Receipt Date: 20150622
  Transmission Date: 20150821
  Serious: Yes (Hospitalization)
  Sender: FDA-Public Use
  Company Number: JP-009507513-1505JPN014064

PATIENT
  Age: 74 Year
  Sex: Female
  Weight: 34 kg

DRUGS (7)
  1. IRESSA [Suspect]
     Active Substance: GEFITINIB
     Indication: NON-SMALL CELL LUNG CANCER
     Dosage: 250 MG, QD, FORMULATION: POR
     Route: 048
     Dates: start: 20150407, end: 20150520
  2. CALONAL [Concomitant]
     Active Substance: ACETAMINOPHEN
     Indication: HEADACHE
     Dosage: SINGLE DOSE 100 MG, PRN
     Route: 048
     Dates: start: 20140422
  3. [COMPOSITION UNSPECIFIED] [Concomitant]
     Active Substance: UNSPECIFIED INGREDIENT
     Indication: HEADACHE
     Dosage: UNK, PRN
     Route: 061
     Dates: start: 20150514, end: 20150520
  4. RESPLEN [Concomitant]
     Active Substance: EPRAZINONE
     Indication: COUGH
     Dosage: 30 MG, TID
     Route: 048
  5. HEPARINOID [Concomitant]
     Active Substance: CHONDROITIN SULFATE (BOVINE)
     Indication: DRY SKIN
     Dosage: AS OCASSION ARISES, PROPER DOSE
     Route: 061
  6. VORINOSTAT [Suspect]
     Active Substance: VORINOSTAT
     Indication: NON-SMALL CELL LUNG CANCER
     Dosage: 200 MG, 7 CONSECUTIVE DAYS TREATMENT AND 7 DAYS OFF
     Route: 048
     Dates: start: 20150407, end: 20150513
  7. LENDORMIN D [Concomitant]
     Active Substance: BROTIZOLAM
     Indication: INSOMNIA
     Dosage: 0.25 MG, QD
     Route: 048

REACTIONS (2)
  - Lung infection [Recovering/Resolving]
  - Fall [Not Recovered/Not Resolved]

NARRATIVE: CASE EVENT DATE: 20150520
